FAERS Safety Report 14123258 (Version 1)
Quarter: 2017Q4

REPORT INFORMATION
  Report Type: Report from Study
  Country: CZ (occurrence: CZ)
  Receive Date: 20171025
  Receipt Date: 20171025
  Transmission Date: 20180321
  Serious: Yes (Death)
  Sender: FDA-Public Use
  Company Number: CZ-SUN PHARMACEUTICAL INDUSTRIES LTD-2017R1-152407

PATIENT
  Age: 37 Year
  Sex: Male

DRUGS (1)
  1. PARACETAMOL [Suspect]
     Active Substance: ACETAMINOPHEN
     Indication: PRODUCT USED FOR UNKNOWN INDICATION
     Dosage: UNK
     Route: 048

REACTIONS (7)
  - Completed suicide [Fatal]
  - Rhabdomyolysis [Fatal]
  - Hepatic failure [Fatal]
  - Intentional overdose [Fatal]
  - Renal failure [Fatal]
  - Toxicity to various agents [Fatal]
  - Metabolic acidosis [Fatal]
